FAERS Safety Report 16545078 (Version 1)
Quarter: 2019Q3

REPORT INFORMATION
  Report Type: Spontaneous
  Country: US (occurrence: US)
  Receive Date: 20190708
  Receipt Date: 20190708
  Transmission Date: 20191004
  Serious: Yes (Hospitalization, Other)
  Sender: FDA-Public Use
  Company Number: None

PATIENT
  Age: 25 Year
  Sex: Male
  Weight: 94.6 kg

DRUGS (13)
  1. ALLOPURINOL. [Concomitant]
     Active Substance: ALLOPURINOL
     Dates: start: 20190508
  2. ONDANSETRON [Concomitant]
     Active Substance: ONDANSETRON
     Dates: start: 20190508, end: 20190524
  3. SEVELAMER [Concomitant]
     Active Substance: SEVELAMER
     Dates: start: 20190508, end: 20190518
  4. PHYTONADIONE. [Concomitant]
     Active Substance: PHYTONADIONE
     Dates: start: 20190508, end: 20190520
  5. DOCUSATE [Concomitant]
     Active Substance: DOCUSATE
     Dates: start: 20190507
  6. SODIUM CHLORIDE (CONTINUOUS INFUSIONS) [Concomitant]
  7. ACYCLOVIR. [Concomitant]
     Active Substance: ACYCLOVIR
     Dates: start: 20181203, end: 20190625
  8. LEVOFLOXACI [Concomitant]
     Dates: start: 20190507
  9. DIPHENHYDRAMINE (PREMED) [Concomitant]
     Dates: start: 20190513, end: 20190513
  10. PROCHLORPERAZINE. [Concomitant]
     Active Substance: PROCHLORPERAZINE
     Dates: start: 20190509, end: 20190510
  11. KYMRIAH [Suspect]
     Active Substance: TISAGENLECLEUCEL
     Indication: ACUTE LYMPHOCYTIC LEUKAEMIA
     Dosage: ?          OTHER FREQUENCY:ONCE;?
     Route: 041
     Dates: start: 20190513, end: 20190513
  12. ACETAMINOPHEN (PREMED)/AS NEEDED [Concomitant]
     Dates: start: 20190513
  13. PANTOPRAZOLE [Concomitant]
     Active Substance: PANTOPRAZOLE
     Dates: start: 20190508, end: 20190524

REACTIONS (3)
  - Neurotoxicity [None]
  - Pyrexia [None]
  - Cardiorenal syndrome [None]

NARRATIVE: CASE EVENT DATE: 20190513
